FAERS Safety Report 5712424-0 (Version None)
Quarter: 2008Q2

REPORT INFORMATION
  Report Type: 
  Country: None (occurrence: None)
  Receive Date: 20080418
  Receipt Date: 20080407
  Transmission Date: 20081010
  Serious: Yes (Life-Threatening, Hospitalization, Disabling)
  Sender: FDA-Public Use
  Company Number: 430022M04USA

PATIENT
  Age: 60 Year
  Sex: Female
  Weight: 64.8644 kg

DRUGS (4)
  1. NOVANTRONE [Suspect]
     Indication: MULTIPLE SCLEROSIS
     Dosage: 20 MG, 1 IN 3 MONTHS, INTRAVENOUS
     Route: 042
     Dates: start: 20010705, end: 20020418
  2. NOVANTRONE [Suspect]
     Indication: MULTIPLE SCLEROSIS
     Dosage: 20 MG, 1 IN 3 MONTHS, INTRAVENOUS
     Route: 042
     Dates: start: 20021016, end: 20030115
  3. DECADRON [Concomitant]
  4. ZOFRAN [Concomitant]

REACTIONS (4)
  - CARDIAC FAILURE CONGESTIVE [None]
  - CARDIOMYOPATHY [None]
  - CHEST PAIN [None]
  - WEIGHT DECREASED [None]
